FAERS Safety Report 6682955-8 (Version None)
Quarter: 2010Q2

REPORT INFORMATION
  Report Type: 
  Country: None (occurrence: None)
  Receive Date: 20100413
  Receipt Date: 20100406
  Transmission Date: 20101027
  Serious: Yes (Hospitalization, Other)
  Sender: FDA-Public Use
  Company Number: 009860

PATIENT
  Age: 19 Year
  Sex: Female
  Weight: 67 kg

DRUGS (3)
  1. KEPPRA [Suspect]
     Dates: start: 20060101, end: 20100406
  2. LAMICTAL [Concomitant]
  3. ZONISAMIDE [Concomitant]

REACTIONS (3)
  - CONVULSION [None]
  - HEAD INJURY [None]
  - STATUS EPILEPTICUS [None]
